FAERS Safety Report 5034048-3 (Version None)
Quarter: 2006Q2

REPORT INFORMATION
  Report Type: 
  Country: None (occurrence: None)
  Receive Date: 20060626
  Receipt Date: 20060622
  Transmission Date: 20061013
  Serious: Yes (Death)
  Sender: FDA-Public Use
  Company Number: MX-BRACCO-BRO-010286

PATIENT
  Age: 51 Year
  Sex: Female

DRUGS (11)
  1. IOPAMIRON [Suspect]
     Indication: SPINAL MYELOGRAM
     Route: 037
     Dates: start: 20060613, end: 20060613
  2. LYSINE CLONIXINATE [Concomitant]
     Route: 050
     Dates: start: 20060601, end: 20060613
  3. RANITIDINE [Concomitant]
     Route: 050
     Dates: start: 20060601, end: 20060613
  4. NIMODIPINE [Concomitant]
     Route: 050
     Dates: start: 20060601, end: 20060613
  5. MANNITOL 20% [Concomitant]
     Route: 050
     Dates: start: 20060601, end: 20060613
  6. MOXIFLOXACIN HCL [Concomitant]
     Route: 050
     Dates: start: 20060609, end: 20060613
  7. ACETAZOLAMIDE [Concomitant]
     Route: 050
     Dates: start: 20060530, end: 20060613
  8. ETHAMBUTOL [Concomitant]
     Route: 050
     Dates: start: 20060609, end: 20060613
  9. RIFAMPICIN [Concomitant]
     Route: 050
     Dates: start: 20060609, end: 20060613
  10. ISONIAZID [Concomitant]
     Route: 050
     Dates: start: 20060609, end: 20060613
  11. PYRAZINAMIDE [Concomitant]
     Route: 050
     Dates: start: 20060609, end: 20060613

REACTIONS (1)
  - CARDIAC ARREST [None]
